FAERS Safety Report 7813269-8 (Version None)
Quarter: 2011Q4

REPORT INFORMATION
  Report Type: 
  Country: None (occurrence: None)
  Receive Date: 20111013
  Receipt Date: 20110930
  Transmission Date: 20120403
  Serious: Yes (Hospitalization)
  Sender: FDA-Public Use
  Company Number: US-ELI_LILLY_AND_COMPANY-US201012002009

PATIENT
  Sex: Female
  Weight: 41.723 kg

DRUGS (9)
  1. DEMECLOCYCLINE HCL [Concomitant]
  2. VITAMIN D [Concomitant]
  3. FORTEO [Suspect]
     Dosage: 20 UG, QD
     Route: 058
  4. ASPIRIN [Concomitant]
  5. CALCIUM CARBONATE [Concomitant]
  6. PLAVIX [Concomitant]
  7. FORTEO [Suspect]
     Indication: OSTEOPOROSIS
     Dosage: 20 UG, DAILY (1/D)
     Route: 058
     Dates: start: 20100901
  8. LEVOTHYROXINE SODIUM [Concomitant]
  9. TRIPTYLIN [Concomitant]

REACTIONS (3)
  - URINARY TRACT INFECTION [None]
  - TRANSIENT ISCHAEMIC ATTACK [None]
  - HOSPITALISATION [None]
